FAERS Safety Report 22594136 (Version 1)
Quarter: 2023Q2

REPORT INFORMATION
  Report Type: Spontaneous
  Country: US (occurrence: US)
  Receive Date: 20230613
  Receipt Date: 20230613
  Transmission Date: 20230722
  Serious: Yes (Hospitalization)
  Sender: FDA-Public Use
  Company Number: US-BRISTOL-MYERS SQUIBB COMPANY-2023-082004

PATIENT
  Age: 82 Year
  Sex: Female
  Weight: 58.06 kg

DRUGS (1)
  1. REVLIMID [Suspect]
     Active Substance: LENALIDOMIDE
     Indication: Cytopenia
     Dosage: DAILY
     Route: 048
     Dates: start: 20230501

REACTIONS (2)
  - Full blood count decreased [Unknown]
  - Off label use [Unknown]
